FAERS Safety Report 23291772 (Version 1)
Quarter: 2023Q4

REPORT INFORMATION
  Report Type: Spontaneous
  Country: US (occurrence: None)
  Receive Date: 20231212
  Receipt Date: 20231212
  Transmission Date: 20240110
  Serious: Yes (Hospitalization, Other)
  Sender: FDA-Public Use
  Company Number: None

PATIENT
  Age: 80 Year
  Sex: Female
  Weight: 63.8 kg

DRUGS (1)
  1. CARVYKTI [Suspect]
     Active Substance: CILTACABTAGENE AUTOLEUCEL

REACTIONS (3)
  - Cytokine release syndrome [None]
  - Pyrexia [None]
  - Infusion related reaction [None]

NARRATIVE: CASE EVENT DATE: 20231105
